FAERS Safety Report 8333850-X (Version None)
Quarter: 2012Q2

REPORT INFORMATION
  Report Type: 
  Country: None (occurrence: None)
  Receive Date: 20120503
  Receipt Date: 20120427
  Transmission Date: 20120825
  Serious: Yes (Hospitalization)
  Sender: FDA-Public Use
  Company Number: BE-PFIZER INC-2012106266

PATIENT
  Age: 58 Year
  Sex: Female

DRUGS (9)
  1. OMEPRAZOLE [Concomitant]
  2. MEDROL [Suspect]
     Dosage: 4 MG, UNK
     Route: 048
  3. MYCOPHENOLATE MOFETIL (CELLCEPT) [Suspect]
     Dosage: 250 MG, UNK
     Route: 048
  4. MOTENS [Concomitant]
  5. BELATACEPT [Suspect]
     Indication: RENAL TRANSPLANT
     Dosage: UNK
     Route: 042
     Dates: start: 20061127
  6. ASPIRIN [Concomitant]
  7. LOSARTAN [Concomitant]
  8. ENOXAPARIN SODIUM [Concomitant]
  9. CALCIUM CARBONATE [Concomitant]

REACTIONS (1)
  - PYELONEPHRITIS [None]
